FAERS Safety Report 5188585-1 (Version None)
Quarter: 2006Q4

REPORT INFORMATION
  Report Type: 
  Country: None (occurrence: None)
  Receive Date: 20061221
  Receipt Date: 20061218
  Transmission Date: 20070319
  Serious: Yes (Hospitalization)
  Sender: FDA-Public Use
  Company Number: HU-ELI_LILLY_AND_COMPANY-HU200612003498

PATIENT
  Age: 67 Year
  Sex: Male

DRUGS (7)
  1. HUMULIN R [Suspect]
     Indication: DIABETES MELLITUS
  2. CALCIUM DOBESILATE [Concomitant]
     Indication: EYE DISORDER
  3. FELODIPINE [Concomitant]
     Indication: HYPERTENSION
  4. HYDROCHLOROTHIAZIDE [Concomitant]
     Indication: CARDIAC FAILURE
  5. FUROSEMIDE INTENSOL [Concomitant]
     Indication: CARDIAC FAILURE
  6. BISOPROLOL FUMARATE [Concomitant]
     Indication: HYPERTENSION
  7. ACENOCOUMAROL [Concomitant]
     Indication: CARDIAC FAILURE
     Dates: end: 20061212

REACTIONS (2)
  - BLOOD GLUCOSE INCREASED [None]
  - SPINAL DISORDER [None]
